FAERS Safety Report 14249082 (Version 17)
Quarter: 2018Q1

REPORT INFORMATION
  Report Type: Spontaneous
  Country: DE (occurrence: DE)
  Receive Date: 20171204
  Receipt Date: 20180302
  Transmission Date: 20180508
  Serious: Yes (Death, Hospitalization, Other)
  Sender: FDA-Public Use
  Company Number: DE-B.I. PHARMACEUTICALS,INC./RIDGEFIELD-2017-BI-064635

PATIENT
  Age: 78 Year
  Sex: Male

DRUGS (44)
  1. DEXTROMETHORPHAN [Suspect]
     Active Substance: DEXTROMETHORPHAN
     Indication: DELIRIUM
     Dosage: 40 MG, DIVIDED INTO 2 DOSAGES
     Route: 065
  2. LORAZEPAM. [Suspect]
     Active Substance: LORAZEPAM
     Indication: AGGRESSION
  3. DONEPEZIL. [Concomitant]
     Active Substance: DONEPEZIL
     Indication: DELIRIUM
  4. RIVASTIGMINE. [Concomitant]
     Active Substance: RIVASTIGMINE
     Indication: DELIRIUM
  5. FLUPENTIXOL [Suspect]
     Active Substance: FLUPENTIXOL
     Indication: PNEUMONIA
     Dosage: 20 MG, QD
     Route: 048
  6. QUETIAPINE FUMARATE. [Suspect]
     Active Substance: QUETIAPINE FUMARATE
     Dosage: UNK UNK, QD
     Route: 048
  7. PAROXETINE. [Suspect]
     Active Substance: PAROXETINE
     Indication: DELIRIUM
     Dosage: 10 MG, QD
     Route: 065
     Dates: start: 20170101
  8. FLUPENTIXOL [Suspect]
     Active Substance: FLUPENTIXOL
     Indication: AGGRESSION
     Dosage: DAILY DOSE UNKNOWN;
     Route: 048
  9. DEXTROMETHORPHAN [Suspect]
     Active Substance: DEXTROMETHORPHAN
     Indication: AGITATION
     Dosage: 24 MG, UNK
     Route: 065
     Dates: start: 20170101
  10. DEXTROMETHORPHAN [Suspect]
     Active Substance: DEXTROMETHORPHAN
     Indication: AGGRESSION
  11. QUETIAPINE. [Suspect]
     Active Substance: QUETIAPINE
     Indication: AGGRESSION
     Dosage: 150 MG, QD
     Route: 065
  12. PAROXETINE. [Suspect]
     Active Substance: PAROXETINE
     Indication: AGITATION
  13. PAROXETINE. [Suspect]
     Active Substance: PAROXETINE
     Indication: AGGRESSION
  14. LORAZEPAM. [Suspect]
     Active Substance: LORAZEPAM
     Indication: DEMENTIA WITH LEWY BODIES
     Dosage: UNK UNK, QD
     Route: 065
     Dates: start: 20160101
  15. CARBAMAZEPINE. [Concomitant]
     Active Substance: CARBAMAZEPINE
     Indication: PRODUCT USED FOR UNKNOWN INDICATION
     Route: 065
  16. FLUPENTIXOL [Suspect]
     Active Substance: FLUPENTIXOL
     Indication: PARANOIA
  17. QUETIAPINE FUMARATE. [Suspect]
     Active Substance: QUETIAPINE FUMARATE
     Dosage: 100 MG, QD
     Route: 048
     Dates: start: 2017
  18. DRONABINOL. [Suspect]
     Active Substance: DRONABINOL
     Indication: AGGRESSION
     Dosage: UNK UNK, QD
     Route: 065
     Dates: start: 20160101
  19. LORAZEPAM. [Suspect]
     Active Substance: LORAZEPAM
     Indication: AGITATION
  20. DONEPEZIL. [Concomitant]
     Active Substance: DONEPEZIL
     Indication: DEMENTIA WITH LEWY BODIES
     Route: 065
  21. DONEPEZIL. [Concomitant]
     Active Substance: DONEPEZIL
     Indication: AGGRESSION
  22. FLUPENTIXOL [Suspect]
     Active Substance: FLUPENTIXOL
     Indication: DELIRIUM
     Dosage: AS HIGH AS TOLERATED
     Route: 048
  23. FLUPENTIXOL [Suspect]
     Active Substance: FLUPENTIXOL
     Indication: AGITATION
  24. DRONABINOL. [Suspect]
     Active Substance: DRONABINOL
     Indication: DELIRIUM
     Dosage: 15 MG, QD
     Route: 065
     Dates: start: 20160101
  25. DRONABINOL. [Suspect]
     Active Substance: DRONABINOL
     Dosage: 2.5 MG, QD
     Route: 065
     Dates: start: 20160101
  26. DRONABINOL. [Suspect]
     Active Substance: DRONABINOL
     Dosage: 15 MG, QD
     Route: 065
     Dates: start: 2016
  27. RIVASTIGMINE. [Concomitant]
     Active Substance: RIVASTIGMINE
     Indication: AGGRESSION
  28. AMPICILLIN AND SULBACTAM [Suspect]
     Active Substance: AMPICILLIN SODIUM\SULBACTAM SODIUM
     Indication: PNEUMONIA
     Dosage: UNK
     Route: 065
     Dates: start: 20160101
  29. FLUPENTIXOL [Suspect]
     Active Substance: FLUPENTIXOL
     Indication: HANGOVER
  30. QUETIAPINE. [Suspect]
     Active Substance: QUETIAPINE
     Dosage: 100 MG, QD
     Route: 065
  31. QUETIAPINE FUMARATE. [Suspect]
     Active Substance: QUETIAPINE FUMARATE
     Indication: DELIRIUM
     Dosage: TIME TO ONSET: 1 YR
     Route: 048
     Dates: start: 2016, end: 2016
  32. LORAZEPAM. [Suspect]
     Active Substance: LORAZEPAM
     Indication: DELIRIUM
  33. FLUPENTIXOL [Suspect]
     Active Substance: FLUPENTIXOL
     Indication: POOR QUALITY SLEEP
  34. FORMOTEROL FUMARATE [Suspect]
     Active Substance: FORMOTEROL FUMARATE
     Indication: PNEUMONIA
     Dosage: 20 MG, QD
     Route: 065
     Dates: start: 20160101
  35. DEXTROMETHORPHAN HYDROBROMIDE. [Suspect]
     Active Substance: DEXTROMETHORPHAN HYDROBROMIDE
     Indication: DELIRIUM
     Dosage: 24 MG, QD
     Route: 065
     Dates: start: 20170101
  36. DEXTROMETHORPHAN HYDROBROMIDE. [Suspect]
     Active Substance: DEXTROMETHORPHAN HYDROBROMIDE
     Indication: AGITATION
  37. RIVASTIGMINE. [Concomitant]
     Active Substance: RIVASTIGMINE
     Indication: DEMENTIA WITH LEWY BODIES
     Route: 065
  38. SPIRIVA [Suspect]
     Active Substance: TIOTROPIUM BROMIDE MONOHYDRATE
     Indication: PNEUMONIA
     Dosage: UNK
     Route: 065
     Dates: start: 20160101
  39. FLUPENTIXOL [Suspect]
     Active Substance: FLUPENTIXOL
     Indication: DEMENTIA WITH LEWY BODIES
  40. QUETIAPINE. [Suspect]
     Active Substance: QUETIAPINE
     Dosage: AS HIGH AS TOLERATED
     Route: 065
  41. QUETIAPINE FUMARATE. [Suspect]
     Active Substance: QUETIAPINE FUMARATE
     Indication: DEMENTIA WITH LEWY BODIES
     Dosage: 150 MG, QD
     Route: 048
     Dates: start: 20160101
  42. QUETIAPINE FUMARATE. [Suspect]
     Active Substance: QUETIAPINE FUMARATE
     Indication: AGGRESSION
     Dosage: 100 MG, QD
     Route: 048
     Dates: start: 20170101
  43. QUETIAPINE FUMARATE. [Suspect]
     Active Substance: QUETIAPINE FUMARATE
     Dosage: 150 MG, QD
     Route: 048
     Dates: start: 2016
  44. DEXTROMETHORPHAN HYDROBROMIDE. [Suspect]
     Active Substance: DEXTROMETHORPHAN HYDROBROMIDE
     Indication: AGGRESSION
     Dosage: DOSE INCREASED, TWO DIVIDED DOSES;
     Route: 065
     Dates: start: 2017

REACTIONS (15)
  - Condition aggravated [Fatal]
  - Delirium [Fatal]
  - Paradoxical drug reaction [Fatal]
  - Off label use [Fatal]
  - Aggression [Fatal]
  - Paranoia [Fatal]
  - Product use in unapproved indication [Fatal]
  - Hangover [Fatal]
  - Completed suicide [Fatal]
  - Withdrawal syndrome [Fatal]
  - Fatigue [Fatal]
  - Agitation [Fatal]
  - Sleep disorder [Fatal]
  - Completed suicide [Fatal]
  - Rebound effect [Fatal]

NARRATIVE: CASE EVENT DATE: 201601
